FAERS Safety Report 12587332 (Version 1)
Quarter: 2016Q3

REPORT INFORMATION
  Report Type: Spontaneous
  Country: FR (occurrence: FR)
  Receive Date: 20160725
  Receipt Date: 20160725
  Transmission Date: 20161109
  Serious: Yes (Other)
  Sender: FDA-Public Use
  Company Number: FR-ROCHE-1800375

PATIENT
  Age: 66 Year
  Sex: Female

DRUGS (4)
  1. LOSARTAN. [Concomitant]
     Active Substance: LOSARTAN
     Indication: HYPERKALAEMIA
     Route: 065
     Dates: end: 20160226
  2. TAXOL [Concomitant]
     Active Substance: PACLITAXEL
     Route: 065
     Dates: start: 20151230
  3. AVASTIN [Suspect]
     Active Substance: BEVACIZUMAB
     Indication: BREAST CANCER
     Dosage: 2 CYCLES ADMINISTERED ON 29-JAN AND 12-FEB-2016
     Route: 041
     Dates: start: 20160129, end: 20160212
  4. LIPANTHYL 200 [Suspect]
     Active Substance: FENOFIBRATE
     Indication: DYSLIPIDAEMIA
     Dosage: START DATE BETWEEN DEC/2014 AND JUN/2015
     Route: 048
     Dates: end: 20160304

REACTIONS (2)
  - Renal failure [Recovering/Resolving]
  - Proteinuria [Recovered/Resolved]

NARRATIVE: CASE EVENT DATE: 20160226
